FAERS Safety Report 12985280 (Version 2)
Quarter: 2017Q1

REPORT INFORMATION
  Report Type: Spontaneous
  Country: US (occurrence: US)
  Receive Date: 20161130
  Receipt Date: 20170106
  Transmission Date: 20170428
  Serious: No
  Sender: FDA-Public Use
  Company Number: US-ASTRAZENECA-2016SF24211

PATIENT
  Age: 70 Year
  Sex: Male
  Weight: 108.9 kg

DRUGS (2)
  1. BLOOD PRESSURE MEDICINE [Concomitant]
     Active Substance: UNSPECIFIED INGREDIENT
  2. SYMBICORT [Suspect]
     Active Substance: BUDESONIDE\FORMOTEROL FUMARATE DIHYDRATE
     Indication: CHRONIC OBSTRUCTIVE PULMONARY DISEASE
     Dosage: 160/4.5 MCG TWO PUFF TWO TIMES A DAY
     Route: 055
     Dates: start: 201508

REACTIONS (5)
  - Night blindness [Unknown]
  - Drug dose omission [Unknown]
  - Intentional device misuse [Unknown]
  - Product quality issue [Unknown]
  - Cataract [Unknown]

NARRATIVE: CASE EVENT DATE: 2016
